FAERS Safety Report 19295879 (Version 2)
Quarter: 2021Q2

REPORT INFORMATION
  Report Type: Spontaneous
  Country: US (occurrence: US)
  Receive Date: 20210524
  Receipt Date: 20210526
  Transmission Date: 20210717
  Serious: Yes (Other)
  Sender: FDA-Public Use
  Company Number: US-ELI_LILLY_AND_COMPANY-US202105010294

PATIENT
  Age: 78 Year
  Sex: Female
  Weight: 82 kg

DRUGS (15)
  1. HUMIRA [Suspect]
     Active Substance: ADALIMUMAB
     Dosage: 40 MG, WEEKLY (1/W), CITRATE FREE
     Route: 058
     Dates: start: 20210402
  2. FOLIC ACID. [Concomitant]
     Active Substance: FOLIC ACID
     Indication: SUPPLEMENTATION THERAPY
  3. ACARBOSE. [Concomitant]
     Active Substance: ACARBOSE
     Indication: DIABETES MELLITUS
  4. METHOTREXATE. [Concomitant]
     Active Substance: METHOTREXATE
     Indication: RHEUMATOID ARTHRITIS
  5. GLIMEPIRIDE. [Concomitant]
     Active Substance: GLIMEPIRIDE
     Indication: DIABETES MELLITUS
  6. METOPROLOL. [Concomitant]
     Active Substance: METOPROLOL
     Indication: HYPERTENSION
  7. MODERNA COVID?19 VACCINE [Suspect]
     Active Substance: CX-024414
     Indication: COVID-19
     Dosage: 1 DOSAGE FORM, SINGLE
     Route: 030
     Dates: start: 20210218, end: 20210218
  8. NITRIC OXIDE. [Concomitant]
     Active Substance: NITRIC OXIDE
     Indication: HYPERTENSION
  9. PRESERVISION [Concomitant]
     Active Substance: MINERALS\VITAMINS
     Indication: MACULAR DEGENERATION
  10. TRULICITY [Suspect]
     Active Substance: DULAGLUTIDE
     Indication: BLOOD GLUCOSE INCREASED
     Dosage: UNK, UNKNOWN
     Route: 058
     Dates: start: 202102, end: 202104
  11. HUMIRA [Suspect]
     Active Substance: ADALIMUMAB
     Indication: PSORIATIC ARTHROPATHY
     Dosage: 40 MG, WEEKLY (1/W), CITRATE FREE
     Route: 058
     Dates: start: 20201030, end: 20210212
  12. MODERNA COVID?19 VACCINE [Suspect]
     Active Substance: CX-024414
     Dosage: 1 DOSAGE FORM, SINGLE
     Route: 030
     Dates: start: 20210318, end: 20210318
  13. SYNTHROID [Concomitant]
     Active Substance: LEVOTHYROXINE SODIUM
     Indication: HYPOTHYROIDISM
  14. VITAMIN D3 [Concomitant]
     Active Substance: CHOLECALCIFEROL
     Indication: SUPPLEMENTATION THERAPY
  15. TOUJEO [Concomitant]
     Active Substance: INSULIN GLARGINE
     Indication: DIABETES MELLITUS
     Dosage: UNK
     Dates: start: 20210426

REACTIONS (7)
  - Vaccination site erythema [Recovered/Resolved]
  - Vaccination site pruritus [Recovered/Resolved]
  - Infected dermal cyst [Recovered/Resolved]
  - Device connection issue [Unknown]
  - Abdominal pain upper [Recovered/Resolved]
  - Procedural pain [Not Recovered/Not Resolved]
  - Nausea [Recovered/Resolved]

NARRATIVE: CASE EVENT DATE: 20210223
